FAERS Safety Report 8713232 (Version 2)
Quarter: 2013Q2

REPORT INFORMATION
  Report Type: Report from Study
  Country: US (occurrence: US)
  Receive Date: 20120808
  Receipt Date: 20130416
  Transmission Date: 20140414
  Serious: Yes (Hospitalization)
  Sender: FDA-Public Use
  Company Number: US-ROCHE-1096489

PATIENT
  Sex: Female

DRUGS (3)
  1. CELLCEPT [Suspect]
     Indication: SYSTEMIC LUPUS ERYTHEMATOSUS
     Route: 048
  2. CELLCEPT [Suspect]
     Indication: MYALGIA
  3. CELLCEPT [Suspect]
     Indication: MYOSITIS

REACTIONS (1)
  - Systemic lupus erythematosus [Unknown]
